FAERS Safety Report 16070059 (Version 1)
Quarter: 2019Q1

REPORT INFORMATION
  Report Type: Spontaneous
  Country: US (occurrence: US)
  Receive Date: 20190314
  Receipt Date: 20190314
  Transmission Date: 20190418
  Serious: No
  Sender: FDA-Public Use
  Company Number: US-009507513-1902USA004823

PATIENT
  Age: 70 Year
  Sex: Male

DRUGS (3)
  1. TEMODAR [Suspect]
     Active Substance: TEMOZOLOMIDE
     Indication: MALIGNANT MELANOMA
     Dosage: UNK
     Route: 048
  2. NIVOLUMAB [Suspect]
     Active Substance: NIVOLUMAB
     Indication: MALIGNANT MELANOMA
  3. LIRILUMAB [Suspect]
     Active Substance: LIRILUMAB
     Indication: METASTASES TO CENTRAL NERVOUS SYSTEM

REACTIONS (6)
  - Malignant melanoma [None]
  - Off label use [Unknown]
  - Fall [None]
  - Head injury [None]
  - Malignant neoplasm progression [None]
  - Metastases to central nervous system [None]
